FAERS Safety Report 4348447-6 (Version None)
Quarter: 2004Q2

REPORT INFORMATION
  Report Type: 
  Country: None (occurrence: None)
  Receive Date: 20040422
  Receipt Date: 20040108
  Transmission Date: 20050107
  Serious: Yes (Death)
  Sender: FDA-Public Use
  Company Number: SYN_0013_2004

PATIENT
  Age: 29 Year
  Sex: Female

DRUGS (2)
  1. DAPAROX [Suspect]
     Indication: PSYCHOTIC DISORDER
     Dosage: 20 MG QDAY, PO
     Route: 048
     Dates: start: 20030101, end: 20030801
  2. XANAX [Concomitant]

REACTIONS (1)
  - CARDIAC FAILURE [None]
